FAERS Safety Report 7331493-8 (Version None)
Quarter: 2011Q1

REPORT INFORMATION
  Report Type: 
  Country: None (occurrence: None)
  Receive Date: 20110224
  Receipt Date: 20110218
  Transmission Date: 20110831
  Serious: Yes (Hospitalization)
  Sender: FDA-Public Use
  Company Number: 2011SP005930

PATIENT
  Age: 70 Year
  Sex: Male

DRUGS (1)
  1. CELESTAN BIPHASE (BETAMETHASONE SODIUM PHOSPHATE/ACETATE /00309501/) [Suspect]
     Indication: PRODUCT USED FOR UNKNOWN INDICATION
     Dosage: IV
     Route: 042

REACTIONS (1)
  - HERPES ZOSTER [None]
